FAERS Safety Report 5227300-X (Version None)
Quarter: 2007Q1

REPORT INFORMATION
  Report Type: 
  Country: None (occurrence: None)
  Receive Date: 20070130
  Receipt Date: 20070116
  Transmission Date: 20070707
  Serious: Yes (Other)
  Sender: FDA-Public Use
  Company Number: ADE001-07

PATIENT
  Sex: Female

DRUGS (1)
  1. AMIODARONE HCL [Suspect]
     Dosage: ORAL 200 MG ONCE DAILY
     Route: 048
     Dates: start: 20061205

REACTIONS (3)
  - ABDOMINAL PAIN [None]
  - DIZZINESS [None]
  - VISUAL DISTURBANCE [None]
